FAERS Safety Report 4397182-7 (Version None)
Quarter: 2004Q3

REPORT INFORMATION
  Report Type: 
  Country: None (occurrence: None)
  Receive Date: 20040708
  Receipt Date: 20040625
  Transmission Date: 20050211
  Serious: Yes (Disabling, Other)
  Sender: FDA-Public Use
  Company Number: 2004043811

PATIENT
  Sex: Female

DRUGS (2)
  1. ATORVASTATIN CALCIUM [Suspect]
     Indication: BLOOD CHOLESTEROL INCREASED
     Dosage: ORAL
     Route: 048
     Dates: start: 20020101, end: 20040201
  2. ROSUVASTATIN (ROSUVASTATIN) [Suspect]
     Indication: BLOOD CHOLESTEROL INCREASED
     Dates: start: 20040101

REACTIONS (7)
  - ANGER [None]
  - ARTHRALGIA [None]
  - BLOOD CHOLESTEROL INCREASED [None]
  - DIFFICULTY IN WALKING [None]
  - IMPAIRED WORK ABILITY [None]
  - PAIN IN EXTREMITY [None]
  - TINNITUS [None]
